FAERS Safety Report 6018476-5 (Version None)
Quarter: 2008Q4

REPORT INFORMATION
  Report Type: 
  Country: None (occurrence: None)
  Receive Date: 20081219
  Receipt Date: 20071112
  Transmission Date: 20090506
  Serious: Yes (Life-Threatening)
  Sender: FDA-Public Use
  Company Number: US200711002560

PATIENT
  Sex: Male

DRUGS (3)
  1. HUMALOG [Suspect]
     Dates: start: 20020101
  2. HUMULIN N [Suspect]
     Dates: start: 19870101
  3. HUMULIN R [Suspect]
     Dates: start: 19870101

REACTIONS (2)
  - HYPOGLYCAEMIA [None]
  - LOSS OF CONSCIOUSNESS [None]
